FAERS Safety Report 7749516-0 (Version None)
Quarter: 2011Q3

REPORT INFORMATION
  Report Type: 
  Country: None (occurrence: None)
  Receive Date: 20110914
  Receipt Date: 20110908
  Transmission Date: 20111222
  Serious: Yes (Other)
  Sender: FDA-Public Use
  Company Number: US-TEVA-299807USA

PATIENT
  Sex: Female
  Weight: 99.426 kg

DRUGS (6)
  1. LORATADINE [Concomitant]
  2. MUPIROCIN [Concomitant]
  3. MOXIFLOXACIN HYDROCHLORIDE [Concomitant]
  4. COPAXONE [Suspect]
     Indication: MULTIPLE SCLEROSIS
     Dosage: 20 MILLIGRAM;
     Route: 058
     Dates: start: 20040101
  5. PREDNISONE [Concomitant]
  6. PAIN KILLER (NOS) [Concomitant]

REACTIONS (2)
  - INJECTION SITE NECROSIS [None]
  - INJECTION SITE INFLAMMATION [None]
